FAERS Safety Report 14894248 (Version 1)
Quarter: 2018Q2

REPORT INFORMATION
  Report Type: Spontaneous
  Country: FR (occurrence: FR)
  Receive Date: 20180515
  Receipt Date: 20180515
  Transmission Date: 20180711
  Serious: Yes (Other)
  Sender: FDA-Public Use
  Company Number: FR-ASTRAZENECA-2018SE62459

PATIENT
  Age: 71 Year
  Sex: Female
  Weight: 45 kg

DRUGS (1)
  1. FASLODEX [Suspect]
     Active Substance: FULVESTRANT
     Indication: BREAST CANCER FEMALE
     Route: 030
     Dates: start: 201711

REACTIONS (10)
  - Insomnia [Unknown]
  - Eye pain [Unknown]
  - Lacrimation increased [Unknown]
  - Pain in extremity [Unknown]
  - Dry skin [Unknown]
  - Skin burning sensation [Unknown]
  - Weight decreased [Unknown]
  - Decreased appetite [Unknown]
  - Alopecia [Unknown]
  - Injection site pain [Recovered/Resolved]
